FAERS Safety Report 16993801 (Version 2)
Quarter: 2019Q4

REPORT INFORMATION
  Report Type: Spontaneous
  Country: AU (occurrence: AU)
  Receive Date: 20191105
  Receipt Date: 20191121
  Transmission Date: 20200122
  Serious: Yes (Hospitalization, Other)
  Sender: FDA-Public Use
  Company Number: AU-PFIZER INC-2019464501

PATIENT
  Age: 45 Year
  Sex: Female
  Weight: 85 kg

DRUGS (10)
  1. ROCURONIUM BROMIDE. [Suspect]
     Active Substance: ROCURONIUM BROMIDE
     Indication: GENERAL ANAESTHESIA
     Dosage: UNK, SINGLE - STAT DOSE
     Route: 042
     Dates: start: 20191025, end: 20191025
  2. HEQUINEL [Concomitant]
     Dosage: UNK
  3. TORVASTAT [Concomitant]
     Active Substance: ATORVASTATIN CALCIUM
     Dosage: UNK
  4. SOZOL [Concomitant]
     Dosage: UNK
  5. JANUVIA [Concomitant]
     Active Substance: SITAGLIPTIN PHOSPHATE
     Dosage: UNK
  6. CEFAZOLIN [Concomitant]
     Active Substance: CEFAZOLIN
     Indication: PROPHYLAXIS
     Dosage: 2 G, SINGLE - STAT
  7. INZA [IBUPROFEN] [Concomitant]
     Dosage: UNK
  8. FORMET [Concomitant]
     Dosage: UNK
  9. SERTRA [Concomitant]
     Active Substance: SERTRALINE HYDROCHLORIDE
     Dosage: UNK
  10. PREXUM [Concomitant]
     Active Substance: PERINDOPRIL ERBUMINE
     Dosage: UNK

REACTIONS (3)
  - Anaphylactic reaction [Recovering/Resolving]
  - Erythema [Recovering/Resolving]
  - Hypotension [Recovering/Resolving]

NARRATIVE: CASE EVENT DATE: 20191025
